FAERS Safety Report 8088352-5 (Version None)
Quarter: 2012Q1

REPORT INFORMATION
  Report Type: 
  Country: None (occurrence: None)
  Receive Date: 20120128
  Receipt Date: 20110531
  Transmission Date: 20120608
  Serious: No
  Sender: FDA-Public Use
  Company Number: US-ABBOTT-11P-163-0729411-00

PATIENT
  Sex: Male

DRUGS (3)
  1. LANTUS [Concomitant]
     Indication: DIABETES MELLITUS
     Dosage: 90 UNITS/DAY
  2. NOVOLOG [Concomitant]
     Indication: DIABETES MELLITUS
     Dosage: 15-20 UNITS/DAY
  3. HUMIRA [Suspect]
     Indication: PSORIASIS
     Dates: start: 20101202

REACTIONS (1)
  - PSORIASIS [None]
